FAERS Safety Report 6085492-7 (Version None)
Quarter: 2009Q1

REPORT INFORMATION
  Report Type: 
  Country: None (occurrence: None)
  Receive Date: 20090220
  Receipt Date: 20090212
  Transmission Date: 20090719
  Serious: Yes (Other)
  Sender: FDA-Public Use
  Company Number: US-AVENTIS-200911211US

PATIENT
  Age: 68 Year
  Sex: Male

DRUGS (4)
  1. LANTUS [Suspect]
     Route: 058
  2. NOVOLIN N [Concomitant]
  3. TYLENOL W/ CODEINE [Concomitant]
     Indication: BACK PAIN
     Dosage: DOSE: UNK
  4. VICODIN [Concomitant]
     Indication: BACK PAIN
     Dosage: DOSE: UNK

REACTIONS (2)
  - FACIAL PALSY [None]
  - MYALGIA [None]
